FAERS Safety Report 4383978-4 (Version None)
Quarter: 2004Q2

REPORT INFORMATION
  Report Type: 
  Country: None (occurrence: None)
  Receive Date: 20040624
  Receipt Date: 20031229
  Transmission Date: 20050107
  Serious: Yes (Disabling, Other)
  Sender: FDA-Public Use
  Company Number: US-BRISTOL-MYERS SQUIBB COMPANY-12466496

PATIENT
  Age: 5 Decade
  Sex: Male

DRUGS (1)
  1. TEQUIN [Suspect]
     Dates: start: 20010731, end: 20010801

REACTIONS (4)
  - DISABILITY [None]
  - NERVE INJURY [None]
  - PAIN [None]
  - PARALYSIS [None]
